FAERS Safety Report 7625268-X (Version None)
Quarter: 2011Q3

REPORT INFORMATION
  Report Type: 
  Country: None (occurrence: None)
  Receive Date: 20110713
  Receipt Date: 20110628
  Transmission Date: 20111222
  Serious: Yes (Hospitalization)
  Sender: FDA-Public Use
  Company Number: 2011MA008153

PATIENT
  Age: 65 Year
  Sex: Female

DRUGS (1)
  1. LEVETIRACETAM [Suspect]
     Indication: NERVOUS SYSTEM DISORDER
     Dosage: 250 MG; Q8H; PO
     Route: 048

REACTIONS (3)
  - DISORIENTATION [None]
  - INAPPROPRIATE ANTIDIURETIC HORMONE SECRETION [None]
  - CONFUSIONAL STATE [None]
